FAERS Safety Report 9295852 (Version 1)
Quarter: 2013Q2

REPORT INFORMATION
  Report Type: Spontaneous
  Country: US (occurrence: US)
  Receive Date: 20130517
  Receipt Date: 20130517
  Transmission Date: 20140414
  Serious: Yes (Hospitalization, Other)
  Sender: FDA-Public Use
  Company Number: US-ABBOTT-13P-163-1089201-00

PATIENT
  Age: 57 Year
  Sex: Female
  Weight: 88.98 kg

DRUGS (12)
  1. HUMIRA [Suspect]
     Indication: PSORIATIC ARTHROPATHY
  2. HUMIRA [Suspect]
  3. CALCITRIOL [Concomitant]
     Indication: PRODUCT USED FOR UNKNOWN INDICATION
  4. TUMS [Concomitant]
     Indication: PRODUCT USED FOR UNKNOWN INDICATION
  5. FENTANYL [Concomitant]
     Indication: PAIN
  6. MORPHINE [Concomitant]
     Indication: BREAKTHROUGH PAIN
     Dosage: AS NEEDED
  7. LEVOTHYROXINE [Concomitant]
     Indication: THYROID DISORDER
  8. MAGNESIUM [Concomitant]
     Indication: PRODUCT USED FOR UNKNOWN INDICATION
  9. DIAZEPAM [Concomitant]
     Indication: MYALGIA
  10. BOTOX [Concomitant]
     Indication: TORTICOLLIS
  11. XANAX [Concomitant]
     Indication: PALPITATIONS
     Dosage: AS NEEDED
  12. HALCION [Concomitant]
     Indication: INSOMNIA

REACTIONS (18)
  - Thyroid disorder [Unknown]
  - Hyperparathyroidism [Recovered/Resolved]
  - Tooth disorder [Recovered/Resolved]
  - Road traffic accident [Unknown]
  - Nephrolithiasis [Recovered/Resolved]
  - Fatigue [Not Recovered/Not Resolved]
  - Hepatic steatosis [Unknown]
  - Hypothyroidism [Recovered/Resolved]
  - Goitre [Unknown]
  - Thyroid neoplasm [Recovered/Resolved]
  - Iodine uptake decreased [Unknown]
  - Tremor [Unknown]
  - Muscle spasms [Unknown]
  - Laceration [Recovered/Resolved]
  - Cold sweat [Unknown]
  - Dyspepsia [Unknown]
  - Pain [Unknown]
  - Drug ineffective [Recovered/Resolved]
